FAERS Safety Report 11897818 (Version 1)
Quarter: 2016Q1

REPORT INFORMATION
  Report Type: Spontaneous
  Country: US (occurrence: None)
  Receive Date: 20160106
  Receipt Date: 20160106
  Transmission Date: 20160526
  Serious: Yes (Life-Threatening)
  Sender: FDA-Public Use
  Company Number: None

PATIENT
  Age: 77 Year
  Sex: Male
  Weight: 78.2 kg

DRUGS (1)
  1. DEXMEDETOMIDINE. [Suspect]
     Active Substance: DEXMEDETOMIDINE
     Indication: CATARACT OPERATION
     Dates: start: 20150924, end: 20150924

REACTIONS (3)
  - Hypotension [None]
  - Bradycardia [None]
  - Respiratory depression [None]

NARRATIVE: CASE EVENT DATE: 20150924
